FAERS Safety Report 20512068 (Version 1)
Quarter: 2022Q1

REPORT INFORMATION
  Report Type: Spontaneous
  Country: US (occurrence: US)
  Receive Date: 20220224
  Receipt Date: 20220224
  Transmission Date: 20220424
  Serious: Yes (Other)
  Sender: FDA-Public Use
  Company Number: US-GLAXOSMITHKLINE-US2022GSK031273

PATIENT

DRUGS (16)
  1. ZANTAC [Suspect]
     Active Substance: RANITIDINE HYDROCHLORIDE
     Indication: Abdominal discomfort
     Dosage: UNK, 3X/WEEK
     Route: 065
     Dates: start: 198001, end: 201212
  2. ZANTAC [Suspect]
     Active Substance: RANITIDINE HYDROCHLORIDE
     Indication: Flatulence
  3. ZANTAC [Suspect]
     Active Substance: RANITIDINE HYDROCHLORIDE
     Indication: Abdominal distension
  4. ZANTAC [Suspect]
     Active Substance: RANITIDINE HYDROCHLORIDE
     Indication: Abdominal discomfort
  5. ZANTAC [Suspect]
     Active Substance: RANITIDINE HYDROCHLORIDE
     Indication: Abdominal discomfort
     Dosage: UNK, 3X/WEEK
     Route: 065
     Dates: start: 198001, end: 201212
  6. ZANTAC [Suspect]
     Active Substance: RANITIDINE HYDROCHLORIDE
     Indication: Flatulence
  7. ZANTAC [Suspect]
     Active Substance: RANITIDINE HYDROCHLORIDE
     Indication: Abdominal distension
  8. ZANTAC [Suspect]
     Active Substance: RANITIDINE HYDROCHLORIDE
     Indication: Abdominal discomfort
  9. RANITIDINE [Suspect]
     Active Substance: RANITIDINE
     Indication: Abdominal discomfort
     Dosage: UNK, 3X/WEEK
     Route: 065
     Dates: start: 198001, end: 201212
  10. RANITIDINE [Suspect]
     Active Substance: RANITIDINE
     Indication: Flatulence
  11. RANITIDINE [Suspect]
     Active Substance: RANITIDINE
     Indication: Abdominal distension
  12. RANITIDINE [Suspect]
     Active Substance: RANITIDINE
     Indication: Abdominal discomfort
  13. RANITIDINE [Suspect]
     Active Substance: RANITIDINE
     Indication: Abdominal discomfort
     Dosage: UNK, 3X/WEEK
     Route: 065
     Dates: start: 198001, end: 201212
  14. RANITIDINE [Suspect]
     Active Substance: RANITIDINE
     Indication: Flatulence
  15. RANITIDINE [Suspect]
     Active Substance: RANITIDINE
     Indication: Abdominal distension
  16. RANITIDINE [Suspect]
     Active Substance: RANITIDINE
     Indication: Abdominal discomfort

REACTIONS (2)
  - Breast cancer [Unknown]
  - Colorectal cancer [Unknown]
